FAERS Safety Report 21761158 (Version 2)
Quarter: 2023Q1

REPORT INFORMATION
  Report Type: Spontaneous
  Country: IT (occurrence: IT)
  Receive Date: 20221221
  Receipt Date: 20230201
  Transmission Date: 20230417
  Serious: Yes (Life-Threatening)
  Sender: FDA-Public Use
  Company Number: None

PATIENT
  Age: 64 Year
  Sex: Male

DRUGS (1)
  1. RITUXIMAB [Suspect]
     Active Substance: RITUXIMAB
     Indication: Primary progressive multiple sclerosis
     Dosage: 1000 MG EVERY 6 MONTHS
     Route: 042
     Dates: start: 20210312

REACTIONS (2)
  - Aortic dissection [Recovered/Resolved]
  - Off label use [Unknown]

NARRATIVE: CASE EVENT DATE: 20210312
